FAERS Safety Report 6184124-7 (Version None)
Quarter: 2009Q2

REPORT INFORMATION
  Report Type: 
  Country: None (occurrence: None)
  Receive Date: 20090508
  Receipt Date: 20090429
  Transmission Date: 20091009
  Serious: Yes (Other)
  Sender: FDA-Public Use
  Company Number: PHEH2004US08039

PATIENT
  Sex: Male

DRUGS (8)
  1. ZOMETA [Suspect]
     Indication: METASTASES TO BONE
     Dosage: 4 MG MONTHLY
     Route: 042
     Dates: start: 20020906, end: 20040604
  2. ZOMETA [Suspect]
     Dosage: UNK
  3. ALLOPURINOL [Concomitant]
     Indication: GOUT
     Dosage: UNK, QD
  4. MULTI-VITAMINS [Concomitant]
     Dosage: UNK, QD
  5. AMBIEN [Concomitant]
     Dosage: PRN
  6. AMOXICILLIN [Concomitant]
     Indication: OPEN WOUND
     Dosage: 500 MG, TID FOR LIFE
     Dates: start: 20040224
  7. MYDRIACYL [Concomitant]
  8. NEO-SYNEPHRINE OPHTHALMICS [Concomitant]

REACTIONS (43)
  - ANAEMIA [None]
  - ANXIETY [None]
  - ARTHRALGIA [None]
  - ARTHRITIS [None]
  - ASTHENOPIA [None]
  - BONE DEBRIDEMENT [None]
  - BONE DISORDER [None]
  - CORONARY ARTERY DISEASE [None]
  - DECREASED INTEREST [None]
  - DEFORMITY [None]
  - EMOTIONAL DISTRESS [None]
  - EPISTAXIS [None]
  - EYE IRRITATION [None]
  - EYE PAIN [None]
  - GASTROOESOPHAGEAL REFLUX DISEASE [None]
  - GENERAL PHYSICAL HEALTH DETERIORATION [None]
  - GINGIVAL DISORDER [None]
  - HEPATECTOMY [None]
  - HYPERSENSITIVITY [None]
  - HYPOPHAGIA [None]
  - IMPAIRED HEALING [None]
  - INFECTION [None]
  - IRITIS [None]
  - KERATOCONJUNCTIVITIS SICCA [None]
  - LACRIMATION INCREASED [None]
  - MASTOIDECTOMY [None]
  - METASTASES TO LIVER [None]
  - MOUTH ULCERATION [None]
  - MYOPIA [None]
  - NEOPLASM MALIGNANT [None]
  - OCULAR HYPERAEMIA [None]
  - OPEN WOUND [None]
  - OSTEOMYELITIS [None]
  - OSTEONECROSIS [None]
  - PAIN [None]
  - PRESBYOPIA [None]
  - REFLUX OESOPHAGITIS [None]
  - SEXUAL DYSFUNCTION [None]
  - SWELLING [None]
  - TOOTH FRACTURE [None]
  - VISION BLURRED [None]
  - WEIGHT DECREASED [None]
  - WOUND SECRETION [None]
